FAERS Safety Report 14374315 (Version 1)
Quarter: 2018Q1

REPORT INFORMATION
  Report Type: Spontaneous
  Country: FR (occurrence: FR)
  Receive Date: 20180111
  Receipt Date: 20180111
  Transmission Date: 20180509
  Serious: Yes (Other)
  Sender: FDA-Public Use
  Company Number: FR-UCBSA-2018000840

PATIENT
  Age: 0 Day

DRUGS (5)
  1. FYCOMPA [Suspect]
     Active Substance: PERAMPANEL
     Indication: PRODUCT USED FOR UNKNOWN INDICATION
     Dosage: 6 MG DAILY
     Route: 064
     Dates: end: 20170831
  2. VIMPAT [Suspect]
     Active Substance: LACOSAMIDE
     Indication: EPILEPSY
     Dosage: 300 MG, UNK
     Route: 064
     Dates: end: 20170831
  3. ZONEGRAN [Suspect]
     Active Substance: ZONISAMIDE
     Dosage: 200 MG, UNK
     Route: 064
  4. ZONEGRAN [Suspect]
     Active Substance: ZONISAMIDE
     Indication: PRODUCT USED FOR UNKNOWN INDICATION
     Dosage: 250 MG, UNK
     Route: 064
  5. ZONEGRAN [Suspect]
     Active Substance: ZONISAMIDE
     Dosage: 300 MG, UNK
     Route: 064
     Dates: end: 20170831

REACTIONS (2)
  - Foetal exposure during pregnancy [Unknown]
  - Premature baby [Unknown]

NARRATIVE: CASE EVENT DATE: 20170831
